FAERS Safety Report 15487354 (Version 1)
Quarter: 2018Q4

REPORT INFORMATION
  Report Type: Report from Study
  Country: KR (occurrence: KR)
  Receive Date: 20181011
  Receipt Date: 20181011
  Transmission Date: 20190205
  Serious: Yes (Hospitalization)
  Sender: FDA-Public Use
  Company Number: KR-B.I. PHARMACEUTICALS,INC./RIDGEFIELD-2018-BI-049353

PATIENT
  Age: 67 Year
  Sex: Female
  Weight: 52 kg

DRUGS (7)
  1. KALITAKER [Concomitant]
     Indication: CHRONIC KIDNEY DISEASE
     Route: 065
     Dates: start: 20180818
  2. CURAN [Concomitant]
     Active Substance: RANITIDINE HYDROCHLORIDE
     Indication: PROPHYLAXIS AGAINST GASTROINTESTINAL ULCER
     Route: 065
     Dates: start: 20171020
  3. TASNA [Concomitant]
     Indication: GOUT
     Route: 065
     Dates: start: 20170818
  4. FEROBA YOU [Concomitant]
     Indication: CHRONIC KIDNEY DISEASE
     Route: 065
     Dates: start: 20180818
  5. GILOTRIF [Suspect]
     Active Substance: AFATINIB
     Indication: NON-SMALL CELL LUNG CANCER
     Route: 048
     Dates: start: 20171103, end: 20171107
  6. GILOTRIF [Suspect]
     Active Substance: AFATINIB
     Route: 048
     Dates: start: 20171112
  7. ADALAT [Concomitant]
     Active Substance: NIFEDIPINE
     Indication: HYPERTENSION
     Route: 065
     Dates: start: 20170818

REACTIONS (1)
  - Hyponatraemia [Recovered/Resolved]

NARRATIVE: CASE EVENT DATE: 20171107
